FAERS Safety Report 11090191 (Version 1)
Quarter: 2015Q2

REPORT INFORMATION
  Report Type: Spontaneous
  Country: JP (occurrence: JP)
  Receive Date: 20150505
  Receipt Date: 20150505
  Transmission Date: 20150821
  Serious: Yes (Hospitalization)
  Sender: FDA-Public Use
  Company Number: JP-PFIZER INC-2015087571

PATIENT
  Age: 58 Year
  Sex: Male

DRUGS (1)
  1. SUTENT [Suspect]
     Active Substance: SUNITINIB MALATE
     Indication: GASTROINTESTINAL STROMAL TUMOUR
     Dosage: UNK
     Route: 048
     Dates: start: 20111007, end: 20111021

REACTIONS (7)
  - Disseminated intravascular coagulation [Recovered/Resolved]
  - Diarrhoea [Recovered/Resolved]
  - Gastrointestinal stromal tumour [Recovered/Resolved]
  - Cholangitis acute [Recovered/Resolved]
  - Nausea [Recovered/Resolved]
  - Disease progression [Recovered/Resolved]
  - Headache [Recovered/Resolved]

NARRATIVE: CASE EVENT DATE: 20111024
